FAERS Safety Report 10915326 (Version 1)
Quarter: 2015Q1

REPORT INFORMATION
  Report Type: Spontaneous
  Country: US (occurrence: None)
  Receive Date: 20150311
  Receipt Date: 20150311
  Transmission Date: 20150721
  Serious: Yes (Other)
  Sender: FDA-Public Use
  Company Number: None

PATIENT
  Age: 60 Year
  Sex: Female
  Weight: 56.7 kg

DRUGS (14)
  1. LEVOTHYROXINE [Concomitant]
     Active Substance: LEVOTHYROXINE
  2. VITAMIN D [Concomitant]
     Active Substance: CHOLECALCIFEROL
  3. TRAZODONE [Concomitant]
     Active Substance: TRAZODONE HYDROCHLORIDE
  4. ZINC [Concomitant]
     Active Substance: ZINC\ZINC CHLORIDE
  5. CELEXA [Concomitant]
     Active Substance: CITALOPRAM HYDROBROMIDE
  6. EPA:DHA [Concomitant]
  7. CALCIUM CARBONATE WITH VITAMIN D [Concomitant]
     Active Substance: CALCIUM CARBONATE\ERGOCALCIFEROL
  8. IPRATROPIUM BROMIDE NASAL SPRAY [Concomitant]
  9. BIOTIN [Concomitant]
     Active Substance: BIOTIN
  10. REFILL SALINE PACKETS 3:1 SODIUM BICARB + SODIUM CHLORID [Suspect]
     Active Substance: SODIUM BICARBONATE\SODIUM CHLORIDE
     Indication: RHINITIS
     Dates: start: 20150310, end: 20150310
  11. RISPERDAL [Concomitant]
     Active Substance: RISPERIDONE
  12. FLUTICASONE PROPIONATE NASAL SPRAY [Concomitant]
     Active Substance: FLUTICASONE PROPIONATE
  13. MIRALAX [Concomitant]
     Active Substance: POLYETHYLENE GLYCOL 3350
  14. VITAMIN B12 [Concomitant]
     Active Substance: CYANOCOBALAMIN

REACTIONS (6)
  - Product formulation issue [None]
  - Ear pain [None]
  - Rhinitis [None]
  - Product quality issue [None]
  - Instillation site pain [None]
  - Product substitution issue [None]

NARRATIVE: CASE EVENT DATE: 20150310
